FAERS Safety Report 8932472 (Version 1)
Quarter: 2012Q4

REPORT INFORMATION
  Report Type: Spontaneous
  Country: US (occurrence: None)
  Receive Date: 20121126
  Receipt Date: 20121126
  Transmission Date: 20130627
  Serious: Yes (Other)
  Sender: FDA-Public Use
  Company Number: None

PATIENT
  Age: 78 Year
  Sex: Female
  Weight: 58.97 kg

DRUGS (1)
  1. CLINDAMYCIN [Suspect]
     Indication: ROOT CANAL PROCEDURE
     Route: 048
     Dates: start: 20120731, end: 20120806

REACTIONS (1)
  - Clostridium difficile colitis [None]
